FAERS Safety Report 11189851 (Version 4)
Quarter: 2015Q3

REPORT INFORMATION
  Report Type: Spontaneous
  Country: US (occurrence: US)
  Receive Date: 20150615
  Receipt Date: 20150805
  Transmission Date: 20151125
  Serious: No
  Sender: FDA-Public Use
  Company Number: US-PFIZER INC-2015195042

PATIENT
  Sex: Female

DRUGS (1)
  1. DUAVEE [Suspect]
     Active Substance: BAZEDOXIFENE ACETATE\ESTROGENS, CONJUGATED
     Indication: MENOPAUSAL SYMPTOMS
     Dosage: 1 DF, 1X/DAY (0.45MG CONJUGATED ESTROGENS/ 20MG BAZEDOXIFENE)
     Route: 048
     Dates: start: 201505, end: 201506

REACTIONS (2)
  - Disease progression [Recovered/Resolved]
  - Vulvovaginal dryness [Recovered/Resolved]
